FAERS Safety Report 14035226 (Version 2)
Quarter: 2017Q4

REPORT INFORMATION
  Report Type: Spontaneous
  Country: US (occurrence: US)
  Receive Date: 20171003
  Receipt Date: 20171005
  Transmission Date: 20180321
  Serious: No
  Sender: FDA-Public Use
  Company Number: US-PFIZER INC-2017423323

PATIENT
  Age: 16 Year
  Sex: Male

DRUGS (1)
  1. GEODON [Suspect]
     Active Substance: ZIPRASIDONE HYDROCHLORIDE\ZIPRASIDONE MESYLATE
     Indication: AGGRESSION
     Dosage: UNK

REACTIONS (2)
  - Drug effect incomplete [Unknown]
  - Product use issue [Unknown]
